FAERS Safety Report 8614341-5 (Version None)
Quarter: 2012Q3

REPORT INFORMATION
  Report Type: 
  Country: None (occurrence: None)
  Receive Date: 20120823
  Receipt Date: 20120816
  Transmission Date: 20120928
  Serious: Yes (Hospitalization)
  Sender: FDA-Public Use
  Company Number: GB-UCBSA-062002

PATIENT
  Age: 9 Month
  Sex: Female

DRUGS (7)
  1. AMOXICILLIN AND CLAVULANATE POTASSIUM [Concomitant]
     Indication: LOWER RESPIRATORY TRACT INFECTION
     Route: 048
     Dates: start: 20120726, end: 20120731
  2. LEUCOVORIN CALCIUM [Concomitant]
     Route: 048
     Dates: start: 20120523
  3. NITRAZEPAM [Concomitant]
     Route: 048
     Dates: start: 20120329
  4. RANITIDINE [Concomitant]
     Route: 048
     Dates: start: 20120313
  5. CLARITHROMYCIN [Concomitant]
     Indication: LOWER RESPIRATORY TRACT INFECTION
     Route: 048
     Dates: start: 20120726, end: 20120728
  6. LEVETIRACETAM [Suspect]
     Route: 048
     Dates: start: 20120309
  7. DOMPERIDONE [Concomitant]
     Route: 048
     Dates: start: 20120313

REACTIONS (1)
  - LOWER RESPIRATORY TRACT INFECTION [None]
